FAERS Safety Report 20291480 (Version 3)
Quarter: 2024Q3

REPORT INFORMATION
  Report Type: Spontaneous
  Country: US (occurrence: US)
  Receive Date: 20220104
  Receipt Date: 20240912
  Transmission Date: 20241016
  Serious: No
  Sender: PFIZER
  Company Number: US-PFIZER INC-202101146227

PATIENT
  Age: 60 Year
  Sex: Female

DRUGS (1)
  1. XELJANZ XR [Suspect]
     Active Substance: TOFACITINIB CITRATE
     Indication: Rheumatoid arthritis
     Dosage: 11 MG, DAILY
     Route: 048
     Dates: start: 202011

REACTIONS (6)
  - Pain [Unknown]
  - Chondropathy [Unknown]
  - Bone loss [Unknown]
  - Condition aggravated [Unknown]
  - Hepatic pain [Unknown]
  - Hepatic enzyme increased [Unknown]
